FAERS Safety Report 9048144 (Version 1)
Quarter: 2013Q1

REPORT INFORMATION
  Report Type: Spontaneous
  Country: US (occurrence: US)
  Receive Date: 20130204
  Receipt Date: 20130204
  Transmission Date: 20140127
  Serious: No
  Sender: FDA-Public Use
  Company Number: US-AMGEN-USASP2013002617

PATIENT
  Age: 55 Year
  Sex: Female

DRUGS (2)
  1. ENBREL [Suspect]
     Indication: PSORIASIS
     Dosage: UNK
     Dates: start: 201006
  2. ANTIPSYCHOTICS [Concomitant]
     Dosage: UNK

REACTIONS (2)
  - Glomerular filtration rate decreased [Unknown]
  - Protein total increased [Unknown]
